FAERS Safety Report 8544583-9 (Version None)
Quarter: 2012Q3

REPORT INFORMATION
  Report Type: 
  Country: None (occurrence: None)
  Receive Date: 20120727
  Receipt Date: 20120725
  Transmission Date: 20120928
  Serious: Yes (Death)
  Sender: FDA-Public Use
  Company Number: US-CELGENEUS-163-21880-11062014

PATIENT
  Sex: Male

DRUGS (15)
  1. ZOFRAN [Concomitant]
     Dosage: 8 MILLIGRAM
     Route: 065
  2. LASIX [Concomitant]
     Dosage: 40
     Route: 065
  3. HUMALOG [Concomitant]
     Route: 065
  4. DECADRON [Concomitant]
     Route: 065
  5. LOVENOX [Concomitant]
     Route: 065
  6. MORPHINE SULFATE [Concomitant]
     Route: 065
  7. POTASSIUM CHLORIDE [Concomitant]
     Dosage: 20 MILLIEQUIVALENTS
     Route: 065
  8. LANTUS [Concomitant]
     Route: 065
  9. REVLIMID [Suspect]
     Indication: MULTIPLE MYELOMA
     Dosage: 25 MILLIGRAM
     Route: 048
     Dates: start: 20090301
  10. COUMADIN [Concomitant]
     Route: 065
  11. ASPIRIN [Concomitant]
     Route: 065
  12. NITROGLYCERIN [Concomitant]
     Dosage: 0.4
     Route: 065
  13. VITAMIN B-12 [Concomitant]
     Route: 050
  14. REVLIMID [Suspect]
     Dosage: 25 MILLIGRAM
     Route: 048
     Dates: start: 20101201
  15. NEXIUM [Concomitant]
     Dosage: 40 MILLIGRAM
     Route: 065

REACTIONS (1)
  - CARDIAC DISORDER [None]
